FAERS Safety Report 4961654-4 (Version None)
Quarter: 2006Q1

REPORT INFORMATION
  Report Type: 
  Country: None (occurrence: None)
  Receive Date: 20060329
  Receipt Date: 20060312
  Transmission Date: 20060701
  Serious: Yes (Life-Threatening)
  Sender: FDA-Public Use
  Company Number: 2006EU000463

PATIENT
  Age: 32 Year
  Sex: Female

DRUGS (3)
  1. PROGRAF [Suspect]
     Indication: HEART AND LUNG TRANSPLANT
  2. MYCOPHENOLATE MOFETIL [Suspect]
     Indication: HEART AND LUNG TRANSPLANT
  3. PREDNISOLONE [Suspect]
     Indication: HEART AND LUNG TRANSPLANT

REACTIONS (9)
  - AORTIC VALVE INCOMPETENCE [None]
  - BACTERAEMIA [None]
  - BRAIN ABSCESS [None]
  - ENDOCARDITIS ENTEROCOCCAL [None]
  - HAEMORRHAGE [None]
  - HEADACHE [None]
  - LEUKOCYTOSIS [None]
  - RENAL INFARCT [None]
  - SPLENIC INFARCTION [None]
